FAERS Safety Report 23448511 (Version 1)
Quarter: 2024Q1

REPORT INFORMATION
  Report Type: Spontaneous
  Country: CN (occurrence: CN)
  Receive Date: 20240127
  Receipt Date: 20240127
  Transmission Date: 20240409
  Serious: Yes (Other)
  Sender: FDA-Public Use
  Company Number: CN-NOVITIUMPHARMA-2024CNNVP00066

PATIENT
  Age: 30 Year
  Sex: Male

DRUGS (7)
  1. PREDNISONE [Suspect]
     Active Substance: PREDNISONE
     Indication: Angiocentric lymphoma
  2. DEXAMETHASONE [Concomitant]
     Active Substance: DEXAMETHASONE
     Indication: Angiocentric lymphoma
  3. IFOSFAMIDE [Concomitant]
     Active Substance: IFOSFAMIDE
     Indication: Angiocentric lymphoma
  4. ETOPOSIDE [Concomitant]
     Active Substance: ETOPOSIDE
     Indication: Angiocentric lymphoma
  5. CISPLATIN [Concomitant]
     Active Substance: CISPLATIN
     Indication: Angiocentric lymphoma
  6. CYTARABINE [Concomitant]
     Active Substance: CYTARABINE
     Indication: Angiocentric lymphoma
  7. Pegaspargase plus gemcitabine [Concomitant]
     Indication: Angiocentric lymphoma

REACTIONS (1)
  - Interstitial lung disease [Recovered/Resolved]
